FAERS Safety Report 8030613-X (Version None)
Quarter: 2012Q1

REPORT INFORMATION
  Report Type: 
  Country: None (occurrence: None)
  Receive Date: 20120105
  Receipt Date: 20111220
  Transmission Date: 20120608
  Serious: Yes (Other)
  Sender: FDA-Public Use
  Company Number: 2011BN000111

PATIENT

DRUGS (2)
  1. CARBOPLATIN [Suspect]
     Indication: RETINOBLASTOMA
     Dosage: 30 MG;IART
  2. MELPHALAN HYDROCHLORIDE [Suspect]
     Indication: RETINOBLASTOMA
     Dosage: 5 MG;IART

REACTIONS (3)
  - IRIS NEOVASCULARISATION [None]
  - VITREOUS HAEMORRHAGE [None]
  - RETINAL ARTERY STENOSIS [None]
